FAERS Safety Report 9169746 (Version 1)
Quarter: 2013Q1

REPORT INFORMATION
  Report Type: Spontaneous
  Country: US (occurrence: US)
  Receive Date: 20130318
  Receipt Date: 20130318
  Transmission Date: 20140127
  Serious: Yes (Hospitalization)
  Sender: FDA-Public Use
  Company Number: US-AMGEN-USASP2013016794

PATIENT
  Age: 77 Year
  Sex: Male

DRUGS (3)
  1. PROLIA [Suspect]
     Indication: OSTEOPOROSIS
     Dosage: UNK
     Dates: start: 20130226
  2. CALCIUM                            /00060701/ [Concomitant]
     Dosage: 4 G, UNK
     Route: 042
  3. VITAMIN D /00107901/ [Concomitant]
     Dosage: 2000 UNIT, QD

REACTIONS (6)
  - Hyperkalaemia [Unknown]
  - Dizziness [Unknown]
  - Nausea [Unknown]
  - Hyperhidrosis [Unknown]
  - Bradycardia [Unknown]
  - Hypocalcaemia [Not Recovered/Not Resolved]
